FAERS Safety Report 18282677 (Version 1)
Quarter: 2020Q3

REPORT INFORMATION
  Report Type: Spontaneous
  Country: CN (occurrence: CN)
  Receive Date: 20200918
  Receipt Date: 20200918
  Transmission Date: 20201103
  Serious: Yes (Other)
  Sender: FDA-Public Use
  Company Number: CN-BAYER-2020-200968

PATIENT
  Sex: Male

DRUGS (1)
  1. NEXAVAR [Suspect]
     Active Substance: SORAFENIB
     Indication: HEPATIC NEOPLASM
     Dosage: UNK
     Route: 048
     Dates: start: 202007

REACTIONS (2)
  - Hepatic neoplasm [None]
  - Drug ineffective [None]

NARRATIVE: CASE EVENT DATE: 202009
